FAERS Safety Report 16343314 (Version 2)
Quarter: 2019Q2

REPORT INFORMATION
  Report Type: Spontaneous
  Country: US (occurrence: US)
  Receive Date: 20190522
  Receipt Date: 20190605
  Transmission Date: 20190711
  Serious: Yes (Other)
  Sender: FDA-Public Use
  Company Number: US-ASTRAZENECA-2019SE74004

PATIENT
  Age: 859 Month
  Sex: Female
  Weight: 63.5 kg

DRUGS (15)
  1. ZYRTEC HCL [Concomitant]
     Indication: SCHNITZLER^S SYNDROME
     Route: 048
     Dates: start: 1990
  2. COLCHICINE. [Concomitant]
     Active Substance: COLCHICINE
  3. ASPIRIN. [Concomitant]
     Active Substance: ASPIRIN
     Route: 048
     Dates: start: 201710
  4. PROBIOTIC [Concomitant]
     Active Substance: PROBIOTICS NOS
     Indication: DYSPEPSIA
     Route: 048
     Dates: start: 2018
  5. NAPROXEN SODIUM. [Concomitant]
     Active Substance: NAPROXEN SODIUM
  6. BRILINTA [Suspect]
     Active Substance: TICAGRELOR
     Indication: CORONARY ARTERIAL STENT INSERTION
     Route: 048
     Dates: start: 201901
  7. BRILINTA [Suspect]
     Active Substance: TICAGRELOR
     Indication: CORONARY ARTERIAL STENT INSERTION
     Route: 048
     Dates: end: 20181009
  8. VITAMIN D3 [Concomitant]
     Active Substance: CHOLECALCIFEROL
     Indication: BONE DISORDER
     Route: 048
  9. BRILINTA [Suspect]
     Active Substance: TICAGRELOR
     Indication: CORONARY ARTERIAL STENT INSERTION
     Route: 048
     Dates: start: 201709, end: 201811
  10. ZANTAC [Concomitant]
     Active Substance: RANITIDINE HYDROCHLORIDE
     Indication: SCHNITZLER^S SYNDROME
     Route: 048
     Dates: start: 1990
  11. CENTRUM SILVER [Concomitant]
     Active Substance: MINERALS\VITAMINS
     Indication: GENERAL PHYSICAL HEALTH DETERIORATION
     Route: 048
     Dates: start: 2009
  12. TSYLLIUM [Concomitant]
     Indication: DYSPEPSIA
     Route: 048
     Dates: start: 2018
  13. PREDNISONE. [Concomitant]
     Active Substance: PREDNISONE
     Indication: SCHNITZLER^S SYNDROME
     Route: 048
     Dates: start: 1990
  14. CALCIUM WITH VITAMIN D [Concomitant]
     Active Substance: CALCIUM\VITAMIN D
     Indication: BONE DISORDER
     Dosage: 600MG/ML DAILY
     Route: 048
  15. LUTEIN AND ZEAXANTHIM [Concomitant]
     Indication: EYE DISORDER
     Route: 048
     Dates: start: 2017

REACTIONS (8)
  - Body height decreased [Not Recovered/Not Resolved]
  - Product administration interrupted [Recovered/Resolved]
  - Spinal stenosis [Recovered/Resolved]
  - Off label use [Unknown]
  - Blood immunoglobulin M increased [Not Recovered/Not Resolved]
  - Shrinking lung syndrome [Unknown]
  - Product dose omission [Unknown]
  - Retinal haemorrhage [Not Recovered/Not Resolved]

NARRATIVE: CASE EVENT DATE: 201808
